FAERS Safety Report 11125848 (Version 1)
Quarter: 2015Q2

REPORT INFORMATION
  Report Type: Spontaneous
  Country: FI (occurrence: FI)
  Receive Date: 20150520
  Receipt Date: 20150520
  Transmission Date: 20150821
  Serious: Yes (Disabling)
  Sender: FDA-Public Use
  Company Number: FI-GLAXOSMITHKLINE-FI2015GSK065369

PATIENT
  Age: 16 Year
  Sex: Male

DRUGS (1)
  1. FLIXONASE NASAL SPRAY [Suspect]
     Active Substance: FLUTICASONE PROPIONATE
     Indication: EAR DISORDER
     Dosage: 2 SPRAYS, BID
     Dates: start: 20150223, end: 20150323

REACTIONS (2)
  - Acne [Not Recovered/Not Resolved]
  - Off label use [Unknown]

NARRATIVE: CASE EVENT DATE: 201502
